FAERS Safety Report 10286934 (Version 1)
Quarter: 2014Q3

REPORT INFORMATION
  Report Type: Spontaneous
  Country: GB (occurrence: None)
  Receive Date: 20140707
  Receipt Date: 20140707
  Transmission Date: 20150326
  Serious: Yes (Other)
  Sender: FDA-Public Use
  Company Number: AUR-APL-2014-07072

PATIENT
  Age: 72 Year
  Sex: Female
  Weight: 77 kg

DRUGS (14)
  1. RANITIDINE [Suspect]
     Active Substance: RANITIDINE\RANITIDINE HYDROCHLORIDE
     Indication: PRODUCT USED FOR UNKNOWN INDICATION
     Route: 048
     Dates: start: 20140610, end: 20140611
  2. CHLORAMPHENICOL(CHLORAMPHENCOL) [Concomitant]
  3. GABAPENTIN (GABAPENTIN) [Concomitant]
     Active Substance: GABAPENTIN
  4. ROSUVASTATIN (ROSUVASTATIN) [Concomitant]
     Active Substance: ROSUVASTATIN
  5. CLOPIDOGREL (CLIPIDOGREL) [Concomitant]
  6. ESTRADIOL (ESTRAADIOL) [Concomitant]
  7. TIMODINE (BENZALKONIUM CHLORIDE, DICHLORALPHENAZONE, HYDROCORTISONE, ISOMETHEOTENE, NYSTATIN, PARACETAMOL, SIMETICONE) [Concomitant]
  8. NASEPTIN (CHLORHEXIDINE HYDROCHLORIDE, NEOMYCIN SULFATE) [Concomitant]
  9. BENCONASE (BECLOMETASONE DIPROPIONATE) [Concomitant]
  10. BISOPROLOL (BISOPROLOL) [Concomitant]
     Active Substance: BISOPROLOL
  11. FENBID (IBUPROFEN) [Concomitant]
  12. SYSTANE (MARCROGOL, PROPYLENE GLYCOL) [Concomitant]
  13. CO-CODAMAOL (CODEINE PHOSPHATE, PARACETAMOL) [Concomitant]
  14. LIDOCAINE (LIDOCAINE) [Concomitant]
     Active Substance: LIDOCAINE

REACTIONS (2)
  - Chest discomfort [None]
  - Dyspepsia [None]

NARRATIVE: CASE EVENT DATE: 20140610
